FAERS Safety Report 11307959 (Version 1)
Quarter: 2015Q3

REPORT INFORMATION
  Report Type: Report from Study
  Country: US (occurrence: US)
  Receive Date: 20150724
  Receipt Date: 20150724
  Transmission Date: 20151125
  Serious: No
  Sender: FDA-Public Use
  Company Number: PHEH2015US014241

PATIENT
  Age: 81 Year
  Sex: Male

DRUGS (1)
  1. COSENTYX [Suspect]
     Active Substance: SECUKINUMAB
     Indication: PSORIASIS
     Dosage: 300 MG, QW
     Route: 058
     Dates: start: 20150701

REACTIONS (4)
  - Cough [Recovering/Resolving]
  - Headache [Recovering/Resolving]
  - Nasopharyngitis [Recovering/Resolving]
  - Oropharyngeal pain [Recovering/Resolving]

NARRATIVE: CASE EVENT DATE: 20150714
